FAERS Safety Report 4510600-6 (Version None)
Quarter: 2004Q4

REPORT INFORMATION
  Report Type: 
  Country: None (occurrence: None)
  Receive Date: 20041124
  Receipt Date: 20041115
  Transmission Date: 20050328
  Serious: Yes (Death)
  Sender: FDA-Public Use
  Company Number: GB-ABBOTT-04P-167-0280864-00

PATIENT
  Age: 51 Year
  Weight: 95 kg

DRUGS (7)
  1. HUMIRA [Suspect]
     Indication: RHEUMATOID ARTHRITIS
     Route: 058
     Dates: start: 20040301, end: 20040501
  2. INFLIXIMAB [Suspect]
     Indication: RHEUMATOID ARTHRITIS
     Dosage: 300-400 MG QWK
     Route: 042
     Dates: start: 20010601, end: 20040101
  3. ETANERCEPT [Concomitant]
     Indication: RHEUMATOID ARTHRITIS
     Dates: start: 20000801, end: 20010601
  4. CYCLOPHOSPHAMIDE [Concomitant]
     Indication: RHEUMATOID ARTHRITIS
     Dates: start: 19900101, end: 19970101
  5. METHOTREXATE [Concomitant]
     Indication: RHEUMATOID ARTHRITIS
  6. LEFLUNOMIDE [Concomitant]
     Indication: RHEUMATOID ARTHRITIS
  7. AZATHIOPRINE [Concomitant]
     Indication: RHEUMATOID ARTHRITIS

REACTIONS (1)
  - LUNG ADENOCARCINOMA [None]
